FAERS Safety Report 16171605 (Version 1)
Quarter: 2019Q2

REPORT INFORMATION
  Report Type: Spontaneous
  Country: US (occurrence: US)
  Receive Date: 20190408
  Receipt Date: 20190408
  Transmission Date: 20190711
  Serious: No
  Sender: FDA-Public Use
  Company Number: US-ACTELION-A-US2019-186241

PATIENT
  Sex: Female

DRUGS (3)
  1. ADEMPAS [Concomitant]
     Active Substance: RIOCIGUAT
     Indication: PULMONARY ARTERIAL HYPERTENSION
     Dosage: UNK
     Dates: start: 2019
  2. IRBESARTAN. [Concomitant]
     Active Substance: IRBESARTAN
  3. OPSUMIT [Suspect]
     Active Substance: MACITENTAN
     Indication: PULMONARY ARTERIAL HYPERTENSION
     Dosage: 10 MG, QD
     Route: 048
     Dates: start: 20181105

REACTIONS (6)
  - Hypotension [Unknown]
  - Condition aggravated [Unknown]
  - Headache [Unknown]
  - Pulmonary arterial hypertension [Unknown]
  - Fatigue [Unknown]
  - Dyspnoea [Unknown]
